FAERS Safety Report 5027475-1 (Version None)
Quarter: 2006Q2

REPORT INFORMATION
  Report Type: 
  Country: None (occurrence: None)
  Receive Date: 20060501
  Receipt Date: 20051210
  Transmission Date: 20061013
  Serious: No
  Sender: FDA-Public Use
  Company Number: 2005PV005707

PATIENT
  Sex: Female

DRUGS (3)
  1. SYMLIN [Suspect]
     Indication: DIABETES MELLITUS INSULIN-DEPENDENT
     Dosage: 15 MCG, TID, SC
     Route: 058
     Dates: start: 20051210
  2. INSULIN [Concomitant]
  3. INFLUENZA VACCINE [Concomitant]

REACTIONS (1)
  - BLOOD GLUCOSE INCREASED [None]
